FAERS Safety Report 7864586-7 (Version None)
Quarter: 2011Q4

REPORT INFORMATION
  Report Type: 
  Country: None (occurrence: None)
  Receive Date: 20111028
  Receipt Date: 20100901
  Transmission Date: 20120403
  Serious: No
  Sender: FDA-Public Use
  Company Number: US-GLAXOSMITHKLINE-A0878942A

PATIENT
  Age: 21 Year
  Sex: Male

DRUGS (7)
  1. PULMICORT [Concomitant]
  2. IMITREX [Suspect]
     Indication: MIGRAINE
     Dosage: 5MG AS REQUIRED
     Route: 045
     Dates: start: 20100101
  3. GABAPENTIN [Concomitant]
  4. PROVENTIL-HFA [Concomitant]
  5. PROTONIX [Concomitant]
  6. NAPROXEN [Concomitant]
  7. PREDNISONE [Concomitant]

REACTIONS (3)
  - HEADACHE [None]
  - BRONCHITIS [None]
  - SINUSITIS [None]
